FAERS Safety Report 4890533-6 (Version None)
Quarter: 2006Q1

REPORT INFORMATION
  Report Type: 
  Country: None (occurrence: None)
  Receive Date: 20060123
  Receipt Date: 20060110
  Transmission Date: 20060701
  Serious: Yes (Hospitalization, Other)
  Sender: FDA-Public Use
  Company Number: US200601001547

PATIENT
  Age: 64 Year
  Sex: Female

DRUGS (2)
  1. FORTEO [Suspect]
     Indication: OSTEOPOROSIS
     Dates: start: 20030101
  2. FORTEO [Concomitant]

REACTIONS (10)
  - FALL [None]
  - FEMUR FRACTURE [None]
  - IATROGENIC INJURY [None]
  - LUNG CARCINOMA CELL TYPE UNSPECIFIED STAGE III [None]
  - NERVE INJURY [None]
  - PAIN IN EXTREMITY [None]
  - PHARMACEUTICAL PRODUCT COMPLAINT [None]
  - POST PROCEDURAL COMPLICATION [None]
  - TREMOR [None]
  - WHEELCHAIR USER [None]
